FAERS Safety Report 10681871 (Version 1)
Quarter: 2014Q4

REPORT INFORMATION
  Report Type: Spontaneous
  Country: US (occurrence: None)
  Receive Date: 20141224
  Receipt Date: 20141224
  Transmission Date: 20150529
  Serious: Yes (Other)
  Sender: FDA-Public Use
  Company Number: KAD201409-001169

PATIENT
  Age: 56 Year
  Sex: Male
  Weight: 79.37 kg

DRUGS (14)
  1. SOVALDI [Suspect]
     Active Substance: SOFOSBUVIR
     Indication: HEPATITIS C
     Dates: start: 20140904
  2. OMEPRAZOLE. [Concomitant]
     Active Substance: OMEPRAZOLE
  3. CARVEDILOL. [Concomitant]
     Active Substance: CARVEDILOL
  4. WELCHOL (COLESEVELAM HYDROCHLORIDE) (625 MILLIGRAM, TABLET) (COLESEVELAM HYDROCHLORIDE) [Concomitant]
     Active Substance: COLESEVELAM HYDROCHLORIDE
  5. CLOPIDOGREL [Concomitant]
     Active Substance: CLOPIDOGREL BISULFATE
  6. ONDANSETRON HCI [Concomitant]
  7. RIBASPHERE [Suspect]
     Active Substance: RIBAVIRIN
     Indication: HEPATITIS C
     Dosage: 600 MG IN THE AM AND PM.
     Route: 048
     Dates: start: 20140904
  8. TRAMADOL [Concomitant]
     Active Substance: TRAMADOL
  9. LOSARTAN [Concomitant]
     Active Substance: LOSARTAN
  10. PEGASYS [Suspect]
     Active Substance: PEGINTERFERON ALFA-2A
     Indication: HEPATITIS C
     Dosage: 180 MCG/0.5 ML
  11. ASPIRIN. [Concomitant]
     Active Substance: ASPIRIN
  12. GABAPENTIN. [Concomitant]
     Active Substance: GABAPENTIN
  13. LEVETIRACETAM. [Concomitant]
     Active Substance: LEVETIRACETAM
  14. ALLOPURINOL. [Concomitant]
     Active Substance: ALLOPURINOL

REACTIONS (3)
  - Nausea [None]
  - Abdominal pain upper [None]
  - Gastroenteritis viral [None]
